FAERS Safety Report 6435668-1 (Version None)
Quarter: 2009Q4

REPORT INFORMATION
  Report Type: 
  Country: None (occurrence: None)
  Receive Date: 20091110
  Receipt Date: 20080304
  Transmission Date: 20100525
  Serious: No
  Sender: FDA-Public Use
  Company Number: AECAN200800050

PATIENT
  Sex: Female

DRUGS (1)
  1. GAMUNEX [Suspect]
     Indication: IDIOPATHIC THROMBOCYTOPENIC PURPURA
     Dosage: IV
     Route: 042
     Dates: start: 20071206, end: 20071215

REACTIONS (1)
  - DRUG ADMINISTRATION ERROR [None]
